FAERS Safety Report 22190939 (Version 1)
Quarter: 2023Q2

REPORT INFORMATION
  Report Type: Spontaneous
  Country: US (occurrence: None)
  Receive Date: 20230405
  Receipt Date: 20230405
  Transmission Date: 20230721
  Serious: No
  Sender: FDA-Public Use
  Company Number: None

PATIENT

DRUGS (1)
  1. ZYPREXA [Suspect]
     Active Substance: OLANZAPINE

REACTIONS (13)
  - Trigeminal neuralgia [None]
  - Heart rate decreased [None]
  - Heart rate increased [None]
  - Back pain [None]
  - Joint lock [None]
  - Arthritis [None]
  - Hypoaesthesia [None]
  - Gait disturbance [None]
  - Muscle spasms [None]
  - Weight increased [None]
  - Headache [None]
  - Pain in jaw [None]
  - Mental disorder [None]
